FAERS Safety Report 11117500 (Version 1)
Quarter: 2015Q2

REPORT INFORMATION
  Report Type: Report from Study
  Country: BR (occurrence: BR)
  Receive Date: 20150516
  Receipt Date: 20150516
  Transmission Date: 20150821
  Serious: Yes (Other)
  Sender: FDA-Public Use
  Company Number: PHHY2015BR054983

PATIENT
  Sex: Female

DRUGS (1)
  1. LEPONEX [Suspect]
     Active Substance: CLOZAPINE
     Indication: PRODUCT USED FOR UNKNOWN INDICATION
     Dosage: 2 DF (TABLETS), QD
     Route: 065

REACTIONS (5)
  - Fatigue [Unknown]
  - Crying [Unknown]
  - Screaming [Unknown]
  - Psychotic disorder [Unknown]
  - Insomnia [Unknown]
